FAERS Safety Report 7198592-5 (Version None)
Quarter: 2010Q4

REPORT INFORMATION
  Report Type: 
  Country: None (occurrence: None)
  Receive Date: 20101227
  Receipt Date: 20101213
  Transmission Date: 20110411
  Serious: Yes (Hospitalization)
  Sender: FDA-Public Use
  Company Number: US-ELI_LILLY_AND_COMPANY-US201012003276

PATIENT
  Sex: Female

DRUGS (2)
  1. GEMCITABINE HCL [Suspect]
     Indication: PANCREATIC CARCINOMA METASTATIC
     Dosage: 1000 MG/M2, CYCLIC
     Route: 042
     Dates: start: 20101122
  2. BLINDED THERAPY [Suspect]
     Indication: PANCREATIC CARCINOMA METASTATIC
     Dosage: UNK, DAILY (1/D)
     Route: 048
     Dates: start: 20101122

REACTIONS (1)
  - DEHYDRATION [None]
